FAERS Safety Report 9210405 (Version 2)
Quarter: 2014Q1

REPORT INFORMATION
  Report Type: Spontaneous
  Country: US (occurrence: US)
  Receive Date: 20130404
  Receipt Date: 20140206
  Transmission Date: 20141002
  Serious: Yes (Other)
  Sender: FDA-Public Use
  Company Number: US-BAYER-2013-039257

PATIENT
  Age: 23 Year
  Sex: Female

DRUGS (2)
  1. YAZ [Suspect]
     Indication: ACNE
  2. YASMIN [Suspect]
     Indication: ACNE

REACTIONS (3)
  - Gallbladder non-functioning [None]
  - Biliary dyskinesia [None]
  - Injury [None]
